FAERS Safety Report 9851864 (Version 2)
Quarter: 2014Q1

REPORT INFORMATION
  Report Type: Report from Study
  Country: FR (occurrence: FR)
  Receive Date: 20140129
  Receipt Date: 20140130
  Transmission Date: 20141002
  Serious: Yes (Hospitalization)
  Sender: FDA-Public Use
  Company Number: FR-ROCHE-1335426

PATIENT
  Sex: Female

DRUGS (4)
  1. RITUXIMAB [Suspect]
     Indication: RHEUMATOID ARTHRITIS
     Dosage: INFUSION OF RITUXIMAB 1 G (DAY 15): 01/MAR/2006; INFUSION OF RITUXIMAB 1G (D1) ON 15-NOV-2007; INFUS
     Route: 042
     Dates: start: 20060214, end: 20091104
  2. TOCILIZUMAB [Suspect]
     Indication: RHEUMATOID ARTHRITIS
     Route: 042
     Dates: start: 20111216
  3. CORTANCYL [Concomitant]
     Dosage: 10 MG/D
     Route: 065
  4. CORTANCYL [Concomitant]
     Dosage: 7.5 MG/D
     Route: 065

REACTIONS (6)
  - Carpal tunnel syndrome [Recovered/Resolved]
  - Herpes virus infection [Recovered/Resolved]
  - Dyspnoea exertional [Not Recovered/Not Resolved]
  - Cardiac murmur [Not Recovered/Not Resolved]
  - Xerophthalmia [Not Recovered/Not Resolved]
  - Dry mouth [Not Recovered/Not Resolved]
